FAERS Safety Report 4704868-0 (Version None)
Quarter: 2005Q2

REPORT INFORMATION
  Report Type: 
  Country: None (occurrence: None)
  Receive Date: 20050630
  Receipt Date: 20050630
  Transmission Date: 20051028
  Serious: No
  Sender: FDA-Public Use
  Company Number: None

PATIENT
  Sex: Male
  Weight: 91.6266 kg

DRUGS (1)
  1. LOSARTAN    100MG [Suspect]
     Indication: HYPERTENSION
     Dosage: 1/2 TABLET   DAILY   ORAL
     Route: 048
     Dates: start: 20050610, end: 20050621

REACTIONS (4)
  - ASTHENIA [None]
  - ERYTHEMA [None]
  - RASH [None]
  - SWELLING FACE [None]
